FAERS Safety Report 7384463-8 (Version None)
Quarter: 2011Q1

REPORT INFORMATION
  Report Type: 
  Country: None (occurrence: None)
  Receive Date: 20110330
  Receipt Date: 20101015
  Transmission Date: 20110831
  Serious: Yes (Life-Threatening, Hospitalization)
  Sender: FDA-Public Use
  Company Number: FR-AMGEN LTD.-KDC436208

PATIENT
  Age: 63 Year
  Sex: Female

DRUGS (5)
  1. FLUOROURACIL [Suspect]
     Dosage: 860 MG, UNK
     Route: 042
     Dates: start: 20100628
  2. DOXYCYCLINE [Concomitant]
     Dosage: 100 MG, UNK
     Dates: start: 20100628, end: 20100723
  3. PANITUMUMAB [Suspect]
     Indication: BREAST CANCER
     Dosage: 567 MG, UNK
     Route: 042
     Dates: start: 20100628
  4. CYCLOPHOSPHAMIDE [Suspect]
     Dosage: 860 MG, UNK
     Route: 042
     Dates: start: 20100628
  5. EPIRUBICIN HYDROCHLORIDE [Suspect]
     Dosage: 172 MG, UNK
     Route: 042
     Dates: start: 20100628

REACTIONS (3)
  - CYTOLYTIC HEPATITIS [None]
  - STOMATITIS [None]
  - SEPSIS [None]
